FAERS Safety Report 18579186 (Version 4)
Quarter: 2020Q4

REPORT INFORMATION
  Report Type: Spontaneous
  Country: JP (occurrence: JP)
  Receive Date: 20201204
  Receipt Date: 20201228
  Transmission Date: 20210114
  Serious: Yes (Life-Threatening, Hospitalization, Other)
  Sender: FDA-Public Use
  Company Number: JP-NOVOPROD-770387

PATIENT
  Age: 67 Year
  Sex: Male

DRUGS (6)
  1. OZEMPIC [Suspect]
     Active Substance: SEMAGLUTIDE
     Indication: TYPE 2 DIABETES MELLITUS
     Dosage: 0.25 MG, QW
     Route: 058
     Dates: start: 20201021, end: 20201104
  2. ZINC. [Suspect]
     Active Substance: ZINC
     Indication: HYPOZINCAEMIA
     Dosage: 25MG
     Route: 048
     Dates: start: 20201030, end: 20201111
  3. FEBURIC [Concomitant]
     Active Substance: FEBUXOSTAT
     Indication: HYPERURICAEMIA
     Dosage: 10MG
     Route: 048
  4. ORKEDIA [Concomitant]
     Active Substance: EVOCALCET
     Indication: HYPERPARATHYROIDISM SECONDARY
     Dosage: 1MG
     Route: 048
  5. RIONA [Concomitant]
     Active Substance: FERRIC CITRATE ANHYDROUS
     Indication: HYPERPHOSPHATAEMIA
     Dosage: 750 MG
     Route: 048
     Dates: start: 20200410
  6. FOSRENOL [Suspect]
     Active Substance: LANTHANUM CARBONATE
     Indication: HYPERPHOSPHATAEMIA
     Dosage: 500MG
     Route: 048
     Dates: start: 20201030, end: 20201111

REACTIONS (4)
  - Enterocolitis [Recovered/Resolved]
  - Ischaemic hepatitis [Recovered/Resolved]
  - Hepatic function abnormal [Recovered/Resolved]
  - Cardiac failure congestive [Unknown]

NARRATIVE: CASE EVENT DATE: 20201107
